FAERS Safety Report 6475030-9 (Version None)
Quarter: 2009Q4

REPORT INFORMATION
  Report Type: 
  Country: None (occurrence: None)
  Receive Date: 20091204
  Receipt Date: 20090525
  Transmission Date: 20100525
  Serious: Yes (Other)
  Sender: FDA-Public Use
  Company Number: FR-ELI_LILLY_AND_COMPANY-FR200903005602

PATIENT
  Age: 76 Year
  Sex: Female
  Weight: 64 kg

DRUGS (2)
  1. CYMBALTA [Suspect]
     Indication: DEPRESSION
     Dosage: 30 MG, DAILY (1/D)
     Route: 048
     Dates: start: 20080320, end: 20080404
  2. DURAGESIC-100 [Interacting]
     Indication: OSTEOARTHRITIS
     Dosage: 25 UG, EVERY HOUR
     Route: 062
     Dates: start: 20080402, end: 20080404

REACTIONS (4)
  - DEPRESSED LEVEL OF CONSCIOUSNESS [None]
  - DRUG INTERACTION [None]
  - RESPIRATORY DEPRESSION [None]
  - SOMNOLENCE [None]
